FAERS Safety Report 5956379-2 (Version None)
Quarter: 2008Q4

REPORT INFORMATION
  Report Type: 
  Country: None (occurrence: None)
  Receive Date: 20081118
  Receipt Date: 20081109
  Transmission Date: 20090506
  Serious: Yes (Hospitalization)
  Sender: FDA-Public Use
  Company Number: US-AMGEN-QUU318061

PATIENT
  Sex: Female

DRUGS (2)
  1. ENBREL [Suspect]
     Indication: RHEUMATOID ARTHRITIS
     Route: 058
     Dates: start: 20041207
  2. METHOTREXATE [Concomitant]
     Route: 048
     Dates: start: 20040101

REACTIONS (3)
  - ARTHRALGIA [None]
  - BODY TEMPERATURE INCREASED [None]
  - HOSPITALISATION [None]
